FAERS Safety Report 9711822 (Version 1)
Quarter: 2013Q4

REPORT INFORMATION
  Report Type: Spontaneous
  Country: US (occurrence: None)
  Receive Date: 20131125
  Receipt Date: 20131125
  Transmission Date: 20140711
  Serious: Yes (Other)
  Sender: FDA-Public Use
  Company Number: None

PATIENT
  Age: 8 Month
  Sex: Female

DRUGS (2)
  1. LEVOCETIRIZINE [Suspect]
     Indication: HYPERSENSITIVITY
     Route: 048
     Dates: start: 20130919, end: 20131118
  2. TRIAMCINOLONE [Suspect]
     Indication: URTICARIA
     Dosage: AS NEEDED ON THE SKIN
     Dates: start: 20131002, end: 20131101

REACTIONS (5)
  - Epistaxis [None]
  - Deafness [None]
  - Suicidal ideation [None]
  - Amnesia [None]
  - Sluggishness [None]
